FAERS Safety Report 11563183 (Version 1)
Quarter: 2015Q3

REPORT INFORMATION
  Report Type: Spontaneous
  Country: US (occurrence: US)
  Receive Date: 20150916
  Receipt Date: 20150916
  Transmission Date: 20151125
  Serious: No
  Sender: FDA-Public Use
  Company Number: US-ELI_LILLY_AND_COMPANY-US200901002259

PATIENT
  Age: 80 Year
  Sex: Female

DRUGS (5)
  1. FORTEO [Suspect]
     Active Substance: TERIPARATIDE
     Dates: start: 20090118, end: 20090120
  2. FORTEO [Suspect]
     Active Substance: TERIPARATIDE
     Dates: start: 20090121
  3. DIGOXIN. [Concomitant]
     Active Substance: DIGOXIN
  4. FORTEO [Suspect]
     Active Substance: TERIPARATIDE
     Indication: BONE DENSITY DECREASED
     Dosage: UNK, UNK
     Dates: start: 20090113, end: 20090115
  5. FORTEO [Suspect]
     Active Substance: TERIPARATIDE

REACTIONS (13)
  - Hypoacusis [Unknown]
  - Drug interaction [Unknown]
  - Injection site discolouration [Unknown]
  - Injection site pain [Unknown]
  - Injection site bruising [Unknown]
  - Injection site haemorrhage [Unknown]
  - Dizziness [Recovered/Resolved]
  - Chest discomfort [Recovering/Resolving]
  - Anxiety [Not Recovered/Not Resolved]
  - Asthenia [Not Recovered/Not Resolved]
  - Needle track marks [Unknown]
  - Injection site erythema [Unknown]
  - Flatulence [Recovered/Resolved]

NARRATIVE: CASE EVENT DATE: 2009
